FAERS Safety Report 16655324 (Version 1)
Quarter: 2019Q3

REPORT INFORMATION
  Report Type: Spontaneous
  Country: HR (occurrence: HR)
  Receive Date: 20190801
  Receipt Date: 20190801
  Transmission Date: 20191004
  Serious: Yes (Other)
  Sender: FDA-Public Use
  Company Number: HR-SA-2019SA206251

PATIENT
  Age: 43 Year
  Sex: Male

DRUGS (1)
  1. AUBAGIO [Suspect]
     Active Substance: TERIFLUNOMIDE
     Indication: MULTIPLE SCLEROSIS
     Dosage: 14 MG
     Route: 048
     Dates: start: 201803

REACTIONS (3)
  - Weight decreased [Recovering/Resolving]
  - Cough [Recovering/Resolving]
  - Interstitial lung disease [Recovering/Resolving]

NARRATIVE: CASE EVENT DATE: 201904
